FAERS Safety Report 9501047 (Version 1)
Quarter: 2013Q3

REPORT INFORMATION
  Report Type: Report from Study
  Country: DE (occurrence: RS)
  Receive Date: 20130905
  Receipt Date: 20130905
  Transmission Date: 20140515
  Serious: Yes (Hospitalization)
  Sender: FDA-Public Use
  Company Number: RS-FRI-1000048408

PATIENT
  Age: 30 Year
  Sex: Male

DRUGS (1)
  1. CAMPRAL [Suspect]
     Indication: ALCOHOLISM
     Dosage: 333 MG
     Route: 048
     Dates: start: 201307, end: 20130828

REACTIONS (1)
  - Laryngeal cancer [Not Recovered/Not Resolved]
